FAERS Safety Report 19269799 (Version 1)
Quarter: 2021Q2

REPORT INFORMATION
  Report Type: Spontaneous
  Country: US (occurrence: US)
  Receive Date: 20210518
  Receipt Date: 20210518
  Transmission Date: 20210717
  Serious: No
  Sender: FDA-Public Use
  Company Number: US-ASTRAZENECA-2021A425104

PATIENT
  Sex: Female
  Weight: 53.5 kg

DRUGS (4)
  1. OMEPRAZOLE. [Suspect]
     Active Substance: OMEPRAZOLE
     Route: 048
  2. PRILOSEC [Suspect]
     Active Substance: OMEPRAZOLE MAGNESIUM
     Route: 048
  3. COVID?19 VACCINE NOS. [Suspect]
     Active Substance: COVID-19 VACCINE NOS
     Dosage: NON AZ DRUG
     Route: 065
     Dates: start: 20210416
  4. SYNTHROID [Concomitant]
     Active Substance: LEVOTHYROXINE SODIUM

REACTIONS (5)
  - Throat irritation [Recovering/Resolving]
  - Tongue discomfort [Recovering/Resolving]
  - Oral discomfort [Recovering/Resolving]
  - Eye irritation [Recovering/Resolving]
  - Nasal discomfort [Recovering/Resolving]
